FAERS Safety Report 9563008 (Version 1)
Quarter: 2013Q3

REPORT INFORMATION
  Report Type: Spontaneous
  Country: US (occurrence: US)
  Receive Date: 20130927
  Receipt Date: 20130927
  Transmission Date: 20140515
  Serious: Yes (Hospitalization)
  Sender: FDA-Public Use
  Company Number: PHHY2013US105340

PATIENT
  Age: 31 Year
  Sex: Male

DRUGS (2)
  1. METHADONE [Suspect]
     Indication: EUPHORIC MOOD
     Dosage: 80 MG, UNK
  2. FLUOXETINE [Concomitant]

REACTIONS (22)
  - Multi-organ failure [Unknown]
  - Deafness neurosensory [Unknown]
  - Tinnitus [Unknown]
  - Renal failure acute [Recovering/Resolving]
  - Hydronephrosis [Unknown]
  - Acute myocardial infarction [Unknown]
  - Atelectasis [Unknown]
  - Respiratory acidosis [Unknown]
  - Urinary tract infection [Unknown]
  - Leukocytosis [Unknown]
  - Pneumonia aspiration [Unknown]
  - Infusion site cellulitis [Unknown]
  - Toxicity to various agents [Unknown]
  - Confusional state [Unknown]
  - Apnoea [Recovered/Resolved]
  - Heart rate increased [Unknown]
  - Lethargy [Unknown]
  - Blood pressure decreased [Unknown]
  - Stupor [Unknown]
  - Pyrexia [Recovered/Resolved]
  - Overdose [Unknown]
  - Chills [Unknown]
